FAERS Safety Report 12173105 (Version 2)
Quarter: 2016Q1

REPORT INFORMATION
  Report Type: Spontaneous
  Country: None (occurrence: GB)
  Receive Date: 20160311
  Receipt Date: 20160316
  Transmission Date: 20160526
  Serious: Yes (Hospitalization)
  Sender: FDA-Public Use
  Company Number: GB-MEDAC PHARMA, INC.-1048958

PATIENT
  Age: 85 Year
  Sex: Female

DRUGS (2)
  1. FLUCLOXACILLIN [Suspect]
     Active Substance: FLUCLOXACILLIN
     Route: 041
  2. METOJECT PEN [Suspect]
     Active Substance: METHOTREXATE
     Route: 058
     Dates: start: 20151207, end: 20160125

REACTIONS (3)
  - Hepatic cancer [Not Recovered/Not Resolved]
  - Drug interaction [Unknown]
  - Lung neoplasm malignant [Not Recovered/Not Resolved]

NARRATIVE: CASE EVENT DATE: 20160202
